FAERS Safety Report 12677713 (Version 1)
Quarter: 2016Q3

REPORT INFORMATION
  Report Type: Spontaneous
  Country: US (occurrence: US)
  Receive Date: 20160823
  Receipt Date: 20160823
  Transmission Date: 20161109
  Serious: Yes (Hospitalization)
  Sender: FDA-Public Use
  Company Number: US-PFIZER INC-3132169

PATIENT
  Age: 60 Year
  Sex: Male
  Weight: 69 kg

DRUGS (7)
  1. NEXIUM [Concomitant]
     Active Substance: ESOMEPRAZOLE MAGNESIUM
     Indication: PROPHYLAXIS
     Dosage: 20 MG, FREQ: 1 DAY, INTERVAL: 1
     Route: 048
     Dates: start: 20140402, end: 20150401
  2. DEPO-MEDROL [Concomitant]
     Active Substance: METHYLPREDNISOLONE ACETATE
     Indication: BACK PAIN
     Dosage: 120 MG, ONCE
     Route: 008
     Dates: start: 20150721
  3. LISINOPRIL. [Concomitant]
     Active Substance: LISINOPRIL
     Indication: HYPERTENSION
     Dosage: 20 MG, FREQ: 1 DAY, INTERVAL: 1
     Route: 048
     Dates: start: 20120101
  4. XYLOCAINE [Concomitant]
     Active Substance: LIDOCAINE HYDROCHLORIDE
     Indication: BACK PAIN
     Dosage: 10 ML, ONCE
     Route: 008
     Dates: start: 20150721
  5. BUPIVACAINE HYDROCHLORIDE/EPINEPHRINE [Suspect]
     Active Substance: BUPIVACAINE HYDROCHLORIDE\EPINEPHRINE
     Indication: BACK PAIN
     Dosage: 0.5%, 20 C, ONCE
     Route: 008
     Dates: start: 20150721, end: 20150721
  6. LIPITOR [Concomitant]
     Active Substance: ATORVASTATIN CALCIUM
     Indication: DYSLIPIDAEMIA
     Dosage: 10 MG, FREQ: 1 DAY, INTERVAL: 1
     Route: 048
     Dates: start: 19930101
  7. XYLOCAINE WITH EPINEPHRINE (EPINEPHRINE BITARTRATE\LIDOCAINE HYDROCHLORIDE) [Concomitant]
     Active Substance: EPINEPHRINE BITARTRATE\LIDOCAINE HYDROCHLORIDE
     Indication: BACK PAIN
     Dosage: 5 ML, ONCE
     Route: 008
     Dates: start: 20150721

REACTIONS (4)
  - Quadriplegia [Recovered/Resolved]
  - Respiratory failure [Unknown]
  - Bradycardia [Recovered/Resolved]
  - Incorrect route of drug administration [Recovered/Resolved]

NARRATIVE: CASE EVENT DATE: 20150721
